FAERS Safety Report 19111424 (Version 4)
Quarter: 2022Q1

REPORT INFORMATION
  Report Type: Spontaneous
  Country: US (occurrence: None)
  Receive Date: 20210408
  Receipt Date: 20220111
  Transmission Date: 20220423
  Serious: Yes (Other)
  Sender: FDA-Public Use
  Company Number: 2021A247369

PATIENT
  Age: 25023 Day
  Sex: Male

DRUGS (17)
  1. NEXIUM [Suspect]
     Active Substance: ESOMEPRAZOLE MAGNESIUM
     Dosage: FOR VARIOUS DATES AND YEARS
     Route: 048
  2. NEXIUM [Suspect]
     Active Substance: ESOMEPRAZOLE MAGNESIUM
     Route: 048
     Dates: start: 20060905, end: 20110403
  3. AMBIEN [Concomitant]
     Active Substance: ZOLPIDEM TARTRATE
  4. ASPIRIN [Concomitant]
     Active Substance: ASPIRIN
  5. CRESTOR [Concomitant]
     Active Substance: ROSUVASTATIN CALCIUM
  6. GLUCOPHAGE [Concomitant]
     Active Substance: METFORMIN HYDROCHLORIDE
  7. GLYBURIDE [Concomitant]
     Active Substance: GLYBURIDE
  8. JANUVIA [Concomitant]
     Active Substance: SITAGLIPTIN PHOSPHATE
  9. LISINOPRIL [Concomitant]
     Active Substance: LISINOPRIL
  10. METFORMIN HYDROCHLORIDE [Concomitant]
     Active Substance: METFORMIN HYDROCHLORIDE
  11. TRAMADOL [Concomitant]
     Active Substance: TRAMADOL
  12. ZETIA [Concomitant]
     Active Substance: EZETIMIBE
  13. PROPECIA [Concomitant]
     Active Substance: FINASTERIDE
  14. ATIVAN [Concomitant]
     Active Substance: LORAZEPAM
  15. CIALIS [Concomitant]
     Active Substance: TADALAFIL
  16. NEURONTIN [Concomitant]
     Active Substance: GABAPENTIN
  17. PATANOL [Concomitant]
     Active Substance: OLOPATADINE HYDROCHLORIDE

REACTIONS (4)
  - Chronic kidney disease [Unknown]
  - Acute kidney injury [Unknown]
  - Nephrogenic anaemia [Unknown]
  - Rebound acid hypersecretion [Unknown]

NARRATIVE: CASE EVENT DATE: 20180409
